FAERS Safety Report 4789313-1 (Version None)
Quarter: 2005Q3

REPORT INFORMATION
  Report Type: 
  Country: None (occurrence: None)
  Receive Date: 20050929
  Receipt Date: 20050822
  Transmission Date: 20060218
  Serious: No
  Sender: FDA-Public Use
  Company Number: 05P-163-0309033-00

PATIENT
  Age: 60 Year
  Sex: Female
  Weight: 68.0396 kg

DRUGS (2)
  1. HUMIRA [Suspect]
     Indication: RHEUMATOID ARTHRITIS
     Dosage: 40 MG, 1 IN 2 WK,  SUBCUTANEOUS
     Route: 058
     Dates: start: 20030101
  2. METHOTREXATE [Concomitant]

REACTIONS (2)
  - DRUG EFFECT DECREASED [None]
  - MEDICATION ERROR [None]
